FAERS Safety Report 7097959 (Version 2)
Quarter: 2013Q1

REPORT INFORMATION
  Report Type: Spontaneous
  Country: DE (occurrence: None)
  Receive Date: 20090818
  Receipt Date: 20121226
  Transmission Date: 20140127
  Serious: Yes (Life-Threatening, Hospitalization)
  Sender: FDA-Public Use
  Company Number: 2009EU002902

PATIENT
  Age: 64 Year
  Sex: Male

DRUGS (15)
  1. TACROLIMUS [Suspect]
     Indication: RENAL TRANSPLANT
     Dosage: 4 MG, UID/QD, ORAL ; 2.5 MG, BID, ORAL
     Route: 048
     Dates: start: 20040601, end: 20040601
  2. DACLIZUMAB [Suspect]
     Indication: RENAL TRANSPLANT
     Dosage: 150 MG, TOTAL DOSE, IV NOS
     Route: 042
     Dates: start: 20040601
  3. MYCOPHENOLATE MOFETIL [Suspect]
     Indication: RENAL TRANSPLANT
     Dosage: 1 G, UID/QD, ORAL
     Route: 048
     Dates: start: 20040601, end: 20040601
  4. PREDNISOLONE [Suspect]
     Indication: RENAL TRANSPLANT
     Dosage: 20 MG, UID/QD, ORAL
     Route: 048
     Dates: start: 20040603
  5. PREDNISOLONE HEMISUCCINATE [Suspect]
     Dosage: 250 MG, BID, IV NOS
     Route: 042
     Dates: start: 20040601, end: 20040603
  6. AMPHOTERICIN B [Concomitant]
  7. AMPICILLIN [Concomitant]
  8. LERCANIDIPINE [Concomitant]
  9. CIPROFLOXACIN [Concomitant]
  10. METRONIDAZOLE [Concomitant]
  11. COTRIM D.S. [Concomitant]
  12. CYMEVEN (GANCICLOVIR SODIUM) [Concomitant]
  13. ROCEPHIN [Concomitant]
  14. SORTIS [Concomitant]
  15. VALCYTE [Concomitant]

REACTIONS (6)
  - Tachycardia [None]
  - Toxicity to various agents [None]
  - Blood creatinine increased [None]
  - Ascites [None]
  - Weight decreased [None]
  - Pseudomembranous colitis [None]
